FAERS Safety Report 18781030 (Version 1)
Quarter: 2021Q1

REPORT INFORMATION
  Report Type: Spontaneous
  Country: US (occurrence: US)
  Receive Date: 20210123
  Receipt Date: 20210123
  Transmission Date: 20210419
  Serious: Yes (Other)
  Sender: FDA-Public Use
  Company Number: None

PATIENT
  Age: 65 Year
  Sex: Female
  Weight: 72.57 kg

DRUGS (1)
  1. ROSUVASTATIN 40MG DAILY [Suspect]
     Active Substance: ROSUVASTATIN
     Route: 048
     Dates: start: 20180606, end: 20181223

REACTIONS (1)
  - Rhabdomyolysis [None]

NARRATIVE: CASE EVENT DATE: 20181223
